FAERS Safety Report 15845603 (Version 2)
Quarter: 2019Q1

REPORT INFORMATION
  Report Type: Report from Study
  Country: DE (occurrence: DE)
  Receive Date: 20190119
  Receipt Date: 20190130
  Transmission Date: 20190417
  Serious: Yes (Other)
  Sender: FDA-Public Use
  Company Number: DE-TORRENT-00013011

PATIENT
  Sex: Female

DRUGS (2)
  1. CETIRIZIN [Suspect]
     Active Substance: CETIRIZINE HYDROCHLORIDE
     Indication: PRODUCT USED FOR UNKNOWN INDICATION
     Dosage: 10 MG, PRN
     Route: 065
     Dates: start: 201109, end: 201204
  2. GILENYA [Suspect]
     Active Substance: FINGOLIMOD HYDROCHLORIDE
     Indication: MULTIPLE SCLEROSIS
     Dosage: 0.5 MG, QD
     Route: 048
     Dates: start: 20120117

REACTIONS (2)
  - Infection susceptibility increased [Recovered/Resolved]
  - Respiratory tract infection [Not Recovered/Not Resolved]

NARRATIVE: CASE EVENT DATE: 201509
